FAERS Safety Report 8984777 (Version 1)
Quarter: 2012Q4

REPORT INFORMATION
  Report Type: 
  Country: PL (occurrence: PL)
  Receive Date: 20121225
  Receipt Date: 20121225
  Transmission Date: 20130627
  Serious: Yes (Hospitalization)
  Sender: FDA-Public Use
  Company Number: PL-JNJFOC-20121210479

PATIENT
  Age: 56 Year
  Sex: Male
  Weight: 84 kg

DRUGS (8)
  1. TRAMADOL HYDROCHLORIDE [Suspect]
     Indication: ABDOMINAL PAIN
     Route: 048
     Dates: start: 201207
  2. AN UNKNOWN MEDICATION [Suspect]
     Indication: NON-SMALL CELL LUNG CANCER
     Route: 065
     Dates: start: 20121019
  3. AN UNKNOWN MEDICATION [Concomitant]
     Indication: CEREBROVASCULAR ACCIDENT
     Route: 065
     Dates: start: 2010
  4. PANTOPRAZOLE [Concomitant]
     Indication: PROPHYLAXIS
     Route: 065
     Dates: start: 20121018
  5. ATORVASTATIN [Concomitant]
     Indication: HYPERTENSION
     Route: 065
     Dates: start: 2010
  6. VINPOCETINE [Concomitant]
     Indication: CEREBROVASCULAR ACCIDENT
     Route: 065
     Dates: start: 2010
  7. DICLOFENAC [Concomitant]
     Indication: CHEST PAIN
     Route: 065
     Dates: start: 20121018
  8. METOPROLOL [Concomitant]
     Indication: HYPERTENSION
     Route: 065
     Dates: start: 2012

REACTIONS (1)
  - Renal failure [Recovered/Resolved]
